FAERS Safety Report 5321340-8 (Version None)
Quarter: 2007Q2

REPORT INFORMATION
  Report Type: 
  Country: None (occurrence: None)
  Receive Date: 20070504
  Receipt Date: 20070420
  Transmission Date: 20071010
  Serious: Yes (Hospitalization)
  Sender: FDA-Public Use
  Company Number: GXKR2007US03611

PATIENT
  Age: 76 Year
  Sex: Male
  Weight: 89 kg

DRUGS (15)
  1. ASPIRIN [Suspect]
     Indication: CARDIOVASCULAR EVENT PROPHYLAXIS
     Dosage: 325 MG, QD, UNKNOWN
  2. DIVALPROEX SODIUM [Suspect]
     Indication: BIPOLAR DISORDER
     Dosage: SEE IMAGE
  3. GABAPENTIN [Concomitant]
  4. NORTRIPTYLINE HCL [Concomitant]
  5. ENALAPRIL MALEATE [Concomitant]
  6. OMEPRAZOLE [Concomitant]
  7. GEMFIBROZIL [Concomitant]
  8. ROSIGLITAZONE [Concomitant]
  9. DOCUSATE SODIUM (DOCUSATE SODIUM) [Concomitant]
  10. PYRIDOXINE (PYRIDOXINE) [Concomitant]
  11. MULTIVITAMINS (ASCORBIC ACID, ERGOCALCIFEROL, FOLIC ACID, NICOTINAMIDE [Concomitant]
  12. OXYCODONE HCL [Concomitant]
  13. FOSINOPRIL SODIUM [Concomitant]
  14. GLYBURIDE [Concomitant]
  15. INSULIN (INSULIN) [Concomitant]

REACTIONS (5)
  - COORDINATION ABNORMAL [None]
  - DIZZINESS [None]
  - DRUG INTERACTION [None]
  - DRUG LEVEL INCREASED [None]
  - FALL [None]
